FAERS Safety Report 6382792-8 (Version None)
Quarter: 2009Q3

REPORT INFORMATION
  Report Type: 
  Country: None (occurrence: None)
  Receive Date: 20090928
  Receipt Date: 20090928
  Transmission Date: 20100115
  Serious: Yes (Life-Threatening, Hospitalization, Other)
  Sender: FDA-Public Use
  Company Number: None

PATIENT
  Age: 54 Year
  Sex: Female
  Weight: 53.978 kg

DRUGS (2)
  1. LEXAPRO [Suspect]
     Indication: DEPRESSION
     Dosage: ? ONCE A DAY PO
     Route: 048
     Dates: start: 20030401, end: 20030413
  2. CELEBREX [Suspect]
     Indication: ARTHRITIS
     Dosage: 200MGS ONCE A DAY PO
     Route: 048
     Dates: start: 20010601, end: 20090618

REACTIONS (9)
  - ABDOMINAL PAIN UPPER [None]
  - ARTHRITIS [None]
  - CHEST PAIN [None]
  - DIVORCED [None]
  - DYSPNOEA EXERTIONAL [None]
  - FAMILY STRESS [None]
  - GASTROINTESTINAL DISORDER [None]
  - INSOMNIA [None]
  - SUICIDE ATTEMPT [None]
